FAERS Safety Report 8011310-3 (Version None)
Quarter: 2011Q4

REPORT INFORMATION
  Report Type: 
  Country: None (occurrence: None)
  Receive Date: 20111228
  Receipt Date: 20111221
  Transmission Date: 20120403
  Serious: Yes (Hospitalization, Other)
  Sender: FDA-Public Use
  Company Number: US-PFIZER INC-2011098127

PATIENT
  Sex: Male
  Weight: 81.633 kg

DRUGS (7)
  1. VIAGRA [Suspect]
  2. VITAMIN TAB [Concomitant]
     Dosage: UNK
  3. VIAGRA [Suspect]
  4. ALENDRONATE SODIUM [Concomitant]
     Dosage: UNK
  5. CALCIUM [Concomitant]
     Indication: BONE DISORDER
     Dosage: UNK
  6. ZOCOR [Concomitant]
     Dosage: UNK
  7. VIAGRA [Suspect]
     Indication: ERECTILE DYSFUNCTION
     Dosage: 50 MG, UNK
     Route: 048
     Dates: start: 20110505

REACTIONS (11)
  - ANORECTAL DISORDER [None]
  - SCROTAL PAIN [None]
  - SURGERY [None]
  - ANGIOPATHY [None]
  - PROCTALGIA [None]
  - ERECTILE DYSFUNCTION [None]
  - PENILE PAIN [None]
  - OEDEMA GENITAL [None]
  - PENILE HAEMATOMA [None]
  - PENIS DISORDER [None]
  - HYDROCELE [None]
